FAERS Safety Report 5199703-3 (Version None)
Quarter: 2007Q1

REPORT INFORMATION
  Report Type: 
  Country: None (occurrence: None)
  Receive Date: 20070105
  Receipt Date: 20061222
  Transmission Date: 20070707
  Serious: Yes (Hospitalization, Disabling, Other)
  Sender: FDA-Public Use
  Company Number: CH-JNJFOC-20060901208

PATIENT
  Sex: Male
  Weight: 77 kg

DRUGS (5)
  1. RISPERDAL CONSTA [Suspect]
     Route: 030
  2. RISPERDAL CONSTA [Suspect]
     Route: 030
  3. RISPERDAL CONSTA [Suspect]
     Dosage: 50 - 75 MG
     Route: 030
  4. RISPERDAL CONSTA [Suspect]
     Indication: SCHIZOPHRENIA, PARANOID TYPE
     Route: 030
  5. PANTOZOL [Concomitant]
     Indication: GASTRIC DISORDER
     Route: 048

REACTIONS (2)
  - DEEP VEIN THROMBOSIS [None]
  - RETINAL ARTERY OCCLUSION [None]
